FAERS Safety Report 5357140-2 (Version None)
Quarter: 2007Q2

REPORT INFORMATION
  Report Type: 
  Country: None (occurrence: None)
  Receive Date: 20070612
  Receipt Date: 20070612
  Transmission Date: 20071010
  Serious: Yes (Life-Threatening, Hospitalization, Disabling)
  Sender: FDA-Public Use
  Company Number: None

PATIENT
  Age: 50 Year
  Sex: Male
  Weight: 97.5234 kg

DRUGS (5)
  1. OMNISCAN [Suspect]
     Indication: DIAGNOSTIC PROCEDURE
     Dosage: 20 CC'S 5 OR 6 IN 2006
     Dates: start: 20060219
  2. OMNISCAN [Suspect]
     Indication: DIAGNOSTIC PROCEDURE
     Dosage: 20 CC'S 5 OR 6 IN 2006
     Dates: start: 20060222
  3. OMNISCAN [Suspect]
     Indication: DIAGNOSTIC PROCEDURE
     Dosage: 20 CC'S 5 OR 6 IN 2006
     Dates: start: 20060301
  4. MULTIHANCE [Suspect]
     Dosage: 1 IN 2007
     Dates: start: 20060801
  5. MULTIHANCE [Suspect]
     Dosage: 1 IN 2007
     Dates: start: 20070301

REACTIONS (4)
  - ARTHRALGIA [None]
  - HYPOAESTHESIA [None]
  - MUSCULOSKELETAL CHEST PAIN [None]
  - NEPHROGENIC FIBROSING DERMOPATHY [None]
